FAERS Safety Report 7285014-9 (Version None)
Quarter: 2011Q1

REPORT INFORMATION
  Report Type: 
  Country: None (occurrence: None)
  Receive Date: 20110204
  Receipt Date: 20110204
  Transmission Date: 20110831
  Serious: Yes (Hospitalization)
  Sender: FDA-Public Use
  Company Number: None

PATIENT
  Sex: Female
  Weight: 80 kg

DRUGS (2)
  1. CARBOPLATIN [Suspect]
     Dosage: 717 MG
     Dates: end: 20110120
  2. TAXOL [Suspect]
     Dosage: 328 MG
     Dates: end: 20110120

REACTIONS (3)
  - NAUSEA [None]
  - VOMITING [None]
  - ANURIA [None]
